FAERS Safety Report 22377578 (Version 1)
Quarter: 2023Q2

REPORT INFORMATION
  Report Type: Spontaneous
  Country: US (occurrence: US)
  Receive Date: 20230529
  Receipt Date: 20230529
  Transmission Date: 20230722
  Serious: No
  Sender: FDA-Public Use
  Company Number: ALC2022US002988

PATIENT
  Sex: Female

DRUGS (1)
  1. SIMBRINZA [Suspect]
     Active Substance: BRIMONIDINE TARTRATE\BRINZOLAMIDE
     Indication: Product used for unknown indication
     Dosage: 1 DRP, BID IN BOTH EYES
     Route: 047
     Dates: start: 20220602

REACTIONS (9)
  - Product packaging quantity issue [Unknown]
  - Drug delivery system issue [Unknown]
  - Product dose omission issue [Unknown]
  - Product colour issue [Unknown]
  - Product container issue [Unknown]
  - Product use complaint [Not Recovered/Not Resolved]
  - Vision blurred [Recovered/Resolved]
  - Ocular discomfort [Recovered/Resolved]
  - Eye pain [Recovered/Resolved]
